FAERS Safety Report 8828720 (Version 2)
Quarter: 2012Q4

REPORT INFORMATION
  Report Type: Report from Study
  Country: DE (occurrence: DE)
  Receive Date: 20121008
  Receipt Date: 20121128
  Transmission Date: 20130627
  Serious: Yes (Death)
  Sender: FDA-Public Use
  Company Number: DE-ROCHE-1139961

PATIENT
  Age: 64 Year
  Sex: Male
  Weight: 108.5 kg

DRUGS (2)
  1. METHOXY POLYETHYLENE GLYCOL-EPOETIN BETA [Suspect]
     Indication: NEPHROGENIC ANAEMIA
     Dosage: last dose prior to SAE: 18/May/2011
     Route: 042
     Dates: start: 20110415
  2. FERRIC SODIUM GLUCONATE/SUCROSE [Suspect]
     Indication: PRODUCT USED FOR UNKNOWN INDICATION
     Route: 065

REACTIONS (3)
  - Anaemia [Fatal]
  - Hyperkalaemia [Fatal]
  - Sudden cardiac death [Fatal]
